FAERS Safety Report 24394992 (Version 2)
Quarter: 2025Q3

REPORT INFORMATION
  Report Type: Spontaneous
  Country: CA (occurrence: CA)
  Receive Date: 20241004
  Receipt Date: 20250809
  Transmission Date: 20251021
  Serious: Yes (Hospitalization, Other)
  Sender: ALEXION PHARMACEUTICALS
  Company Number: CA-AstraZeneca-CH-00711395A

PATIENT
  Age: 41 Year
  Sex: Female

DRUGS (8)
  1. QUETIAPINE FUMARATE [Interacting]
     Active Substance: QUETIAPINE FUMARATE
     Indication: Insomnia
     Dosage: 25 MILLIGRAM, QD
  2. ABILIFY MAINTENA [Interacting]
     Active Substance: ARIPIPRAZOLE
     Indication: Product used for unknown indication
     Route: 065
  3. ABILIFY MAINTENA [Interacting]
     Active Substance: ARIPIPRAZOLE
  4. ABILIFY MAINTENA [Interacting]
     Active Substance: ARIPIPRAZOLE
  5. CYMBALTA [Interacting]
     Active Substance: DULOXETINE HYDROCHLORIDE
     Indication: Insomnia
     Route: 065
  6. CYMBALTA [Interacting]
     Active Substance: DULOXETINE HYDROCHLORIDE
  7. CYMBALTA [Interacting]
     Active Substance: DULOXETINE HYDROCHLORIDE
  8. RIVOTRIL [Interacting]
     Active Substance: CLONAZEPAM
     Indication: Insomnia
     Dosage: 1 DOSAGE FORM, QD
     Route: 065

REACTIONS (7)
  - Abnormal behaviour [Unknown]
  - Drug interaction [Unknown]
  - Mood altered [Unknown]
  - Stubbornness [Unknown]
  - Thinking abnormal [Unknown]
  - Off label use [Unknown]
  - Product use issue [Unknown]
